FAERS Safety Report 6293561-1 (Version None)
Quarter: 2009Q3

REPORT INFORMATION
  Report Type: 
  Country: None (occurrence: None)
  Receive Date: 20090803
  Receipt Date: 20090729
  Transmission Date: 20100115
  Serious: Yes (Hospitalization)
  Sender: FDA-Public Use
  Company Number: FR-BRISTOL-MYERS SQUIBB COMPANY-14722086

PATIENT
  Age: 20 Year
  Sex: Female

DRUGS (6)
  1. AMIKLIN INJ [Suspect]
     Indication: TUBERCULOSIS
     Route: 042
     Dates: start: 20090418, end: 20090506
  2. RIFADIN [Suspect]
     Indication: TUBERCULOSIS
     Dosage: RIFADINE 600MG
     Route: 042
     Dates: start: 20090418, end: 20090516
  3. RIMIFON [Suspect]
     Indication: TUBERCULOSIS
     Dosage: RIMIFON 500 MG/5 ML
     Route: 042
     Dates: start: 20090418
  4. MYAMBUTOL [Suspect]
     Indication: TUBERCULOSIS
     Dosage: 1 G DAILY IV THEN 700 MG DAILY
     Route: 042
     Dates: start: 20090417
  5. TERCIAN [Suspect]
     Indication: TUBERCULOSIS
     Route: 048
     Dates: start: 20090421, end: 20090515
  6. RIFATER [Concomitant]
     Indication: TUBERCULOSIS
     Dates: start: 20090417

REACTIONS (1)
  - COOMBS POSITIVE HAEMOLYTIC ANAEMIA [None]
